FAERS Safety Report 9462925 (Version 1)
Quarter: 2013Q3

REPORT INFORMATION
  Report Type: Spontaneous
  Country: FR (occurrence: None)
  Receive Date: 20130814
  Receipt Date: 20130814
  Transmission Date: 20140515
  Serious: Yes (Hospitalization)
  Sender: FDA-Public Use
  Company Number: 7228015

PATIENT
  Age: 74 Year
  Sex: Female

DRUGS (9)
  1. LEVOTHYROX [Suspect]
     Indication: PRODUCT USED FOR UNKNOWN INDICATION
     Dosage: SEP 2011 AT LEAST - ONGOING
     Route: 048
     Dates: start: 201109
  2. STAGID [Suspect]
     Indication: DIABETES MELLITUS
     Route: 048
  3. PREVISCAN [Suspect]
     Indication: PRODUCT USED FOR UNKNOWN INDICATION
     Route: 048
  4. BISOPROLOL (BISOPROLOL) (BISOPROLOL, HEMIIFUMARATE) [Concomitant]
     Indication: PRODUCT USED FOR UNKNOWN INDICATION
  5. FUROSEMID [Suspect]
     Indication: PRODUCT USED FOR UNKNOWN INDICATION
  6. SPIRONOLACTONE [Suspect]
     Indication: PRODUCT USED FOR UNKNOWN INDICATION
  7. KARDEGIC [Suspect]
  8. TAHOR [Suspect]
  9. EZETROL [Suspect]
     Indication: HYPERCHOLESTEROLAEMIA

REACTIONS (3)
  - Coronary artery bypass [None]
  - Heart valve replacement [None]
  - Cardiac pacemaker insertion [None]
